FAERS Safety Report 12617180 (Version 1)
Quarter: 2016Q3

REPORT INFORMATION
  Report Type: Spontaneous
  Country: US (occurrence: US)
  Receive Date: 20160803
  Receipt Date: 20160803
  Transmission Date: 20161109
  Serious: Yes (Hospitalization, Other)
  Sender: FDA-Public Use
  Company Number: US-CELGENEUS-USA-2016076719

PATIENT
  Sex: Male
  Weight: 62.2 kg

DRUGS (1)
  1. POMALYST [Suspect]
     Active Substance: POMALIDOMIDE
     Indication: PLASMA CELL MYELOMA
     Dosage: 4 MILLIGRAM
     Route: 048
     Dates: start: 20160401

REACTIONS (3)
  - Thrombosis [Unknown]
  - Peripheral swelling [Unknown]
  - Dizziness [Unknown]

NARRATIVE: CASE EVENT DATE: 2016
